FAERS Safety Report 5316628-0 (Version None)
Quarter: 2007Q2

REPORT INFORMATION
  Report Type: 
  Country: None (occurrence: None)
  Receive Date: 20070504
  Receipt Date: 20070503
  Transmission Date: 20071010
  Serious: Yes (Other)
  Sender: FDA-Public Use
  Company Number: JP-BRISTOL-MYERS SQUIBB COMPANY-13769047

PATIENT
  Age: 59 Year
  Sex: Female

DRUGS (4)
  1. HYDROXYUREA [Suspect]
     Indication: ESSENTIAL THROMBOCYTHAEMIA
     Dates: end: 20020801
  2. MITOBRONITOL [Suspect]
     Indication: ESSENTIAL THROMBOCYTHAEMIA
     Dates: end: 20020801
  3. BUSULFAN [Suspect]
     Indication: ESSENTIAL THROMBOCYTHAEMIA
     Dates: end: 20020801
  4. RANIMUSTINE [Suspect]
     Indication: ESSENTIAL THROMBOCYTHAEMIA
     Dates: end: 20020801

REACTIONS (1)
  - MYELOFIBROSIS [None]
